FAERS Safety Report 8756840 (Version 3)
Quarter: 2013Q1

REPORT INFORMATION
  Report Type: Spontaneous
  Country: JP (occurrence: None)
  Receive Date: 20120813
  Receipt Date: 20120918
  Transmission Date: 20140127
  Serious: Yes (Hospitalization)
  Sender: FDA-Public Use
  Company Number: 2012HGS-003849

PATIENT
  Age: 34 Year
  Sex: Female

DRUGS (7)
  1. BELIMUMAB [Suspect]
     Indication: SYSTEMIC LUPUS ERYTHEMATOSUS
     Route: 042
     Dates: start: 20120712
  2. BETAMETHASONE (BETAMETHASONE) (BETAMETHASONE) [Concomitant]
  3. CICLOSPORIN (CICLOSPORIN) (CICLOSPORIN) [Concomitant]
  4. TOCOPHEROL NICOTINATE (TOCOPHEROL) (TOCOPHEROL) [Concomitant]
  5. ACETAMINOPHEN (PARACETAMOL) (PARACETAMOL) [Concomitant]
  6. LOXOPROFEN SODIUM (LOXOPROFEN SODIUM) (LOXOPROFEN SODIUM) [Concomitant]
  7. SENNA LEAF (SENNA ALEXANDRINA LEAF) (SENNA ALEXANDRINA LEAF) [Concomitant]

REACTIONS (9)
  - Systemic lupus erythematosus [None]
  - Stomatitis [None]
  - Aspartate aminotransferase increased [None]
  - Alanine aminotransferase increased [None]
  - Bilirubin conjugated increased [None]
  - Aspartate aminotransferase increased [None]
  - Alanine aminotransferase increased [None]
  - Drug-induced liver injury [None]
  - Lupus hepatitis [None]
